FAERS Safety Report 7084713-1 (Version None)
Quarter: 2010Q4

REPORT INFORMATION
  Report Type: 
  Country: None (occurrence: None)
  Receive Date: 20101104
  Receipt Date: 20101025
  Transmission Date: 20110411
  Serious: Yes (Hospitalization)
  Sender: FDA-Public Use
  Company Number: US-CELGENEUS-163-21880-10042020

PATIENT
  Sex: Female

DRUGS (44)
  1. REVLIMID [Suspect]
     Indication: MULTIPLE MYELOMA
     Route: 048
     Dates: start: 20080201
  2. REVLIMID [Suspect]
     Route: 048
     Dates: start: 20090701
  3. REVLIMID [Suspect]
     Route: 048
     Dates: start: 20091001, end: 20100115
  4. REVLIMID [Suspect]
     Route: 048
     Dates: start: 20100501
  5. DEXAMETHASONE [Concomitant]
     Route: 048
     Dates: start: 20100913
  6. LOVENOX [Concomitant]
     Dosage: 40MG/0.4ML
     Route: 058
     Dates: start: 20101011
  7. PRAVASTATIN [Concomitant]
     Route: 065
  8. LEVOTHYROXINE [Concomitant]
     Route: 065
  9. LEVOTHYROXINE [Concomitant]
     Route: 048
     Dates: start: 20100524
  10. POTASSIUM CHLORIDE [Concomitant]
     Route: 065
  11. VICODIN [Concomitant]
     Route: 065
  12. MULTI-VITAMINS [Concomitant]
     Route: 065
  13. AMITRIPTYLINE HCL [Concomitant]
     Route: 065
  14. CLONIDINE [Concomitant]
     Route: 065
  15. AMLODIPINE [Concomitant]
     Route: 065
  16. FENTANYL [Concomitant]
     Dosage: 50MCG/HR
     Route: 062
     Dates: start: 20100913
  17. PRILOSEC [Concomitant]
     Route: 065
  18. PRILOSEC [Concomitant]
     Route: 048
     Dates: start: 20100823
  19. SULFAMETHOXAZOLE [Concomitant]
     Route: 065
  20. SPIRIVA [Concomitant]
     Route: 065
     Dates: start: 20100125
  21. SPIRIVA [Concomitant]
     Route: 055
     Dates: start: 20100524
  22. TRAVATAN [Concomitant]
     Route: 047
     Dates: start: 20100323
  23. HYDROCODONE [Concomitant]
     Indication: PAIN
     Dosage: 5MG-325MG
     Route: 048
     Dates: start: 20100719
  24. HYDROCODONE [Concomitant]
     Route: 065
  25. LISINOPRIL [Concomitant]
     Route: 048
     Dates: start: 20100719
  26. LISINOPRIL [Concomitant]
     Route: 065
     Dates: start: 20100323
  27. ADVAIR DISKUS 100/50 [Concomitant]
     Route: 065
     Dates: start: 20100125
  28. ADVAIR DISKUS 100/50 [Concomitant]
     Route: 065
     Dates: start: 20100323
  29. ADVAIR DISKUS 100/50 [Concomitant]
     Dosage: 100MCG-50MCG
     Route: 055
     Dates: start: 20100603
  30. SINGULAIR [Concomitant]
     Route: 065
     Dates: start: 20100125
  31. SINGULAIR [Concomitant]
     Route: 065
     Dates: start: 20100323
  32. SINGULAIR [Concomitant]
     Route: 048
     Dates: start: 20100524
  33. ASPIRIN [Concomitant]
     Route: 048
     Dates: start: 20100524
  34. FLUTICASONE FUROATE [Concomitant]
     Dosage: 2 SPRAYS PER NOSTRIL
     Route: 045
     Dates: start: 20100524
  35. LASIX [Concomitant]
     Route: 065
     Dates: start: 20100123
  36. LASIX [Concomitant]
     Route: 048
     Dates: start: 20100524
  37. POTASSIUM CHLORIDE [Concomitant]
     Route: 048
     Dates: start: 20100524
  38. ONDANSETRON [Concomitant]
     Route: 048
     Dates: start: 20100702
  39. CENTRUM SILVER [Concomitant]
     Route: 048
  40. AUGMENTIN '125' [Concomitant]
     Route: 065
     Dates: start: 20100125
  41. MEDROL [Concomitant]
     Route: 065
     Dates: start: 20100125
  42. FERROUS SULFATE [Concomitant]
     Route: 065
     Dates: start: 20100125
  43. PROAIR HFA [Concomitant]
     Route: 065
     Dates: start: 20100125
  44. ROBITUSSIN WITH CODEINE [Concomitant]
     Route: 065
     Dates: start: 20100125

REACTIONS (13)
  - ANAEMIA [None]
  - ASPIRATION [None]
  - BACTERIAL TEST POSITIVE [None]
  - CHRONIC OBSTRUCTIVE PULMONARY DISEASE [None]
  - EAR INFECTION [None]
  - INFLUENZA [None]
  - LEUKOCYTOSIS [None]
  - MALIGNANT NEOPLASM PROGRESSION [None]
  - MULTIPLE MYELOMA [None]
  - PNEUMONIA [None]
  - PYREXIA [None]
  - RENAL FAILURE [None]
  - URINARY TRACT INFECTION [None]
